FAERS Safety Report 18233096 (Version 1)
Quarter: 2020Q3

REPORT INFORMATION
  Report Type: Spontaneous
  Country: US (occurrence: US)
  Receive Date: 20200904
  Receipt Date: 20200904
  Transmission Date: 20201103
  Serious: No
  Sender: FDA-Public Use
  Company Number: US-MYLANLABS-2020M1075558

PATIENT
  Sex: Female
  Weight: 86 kg

DRUGS (2)
  1. ESTRADIOL TRANSDERMAL SYSTEM [Suspect]
     Active Substance: ESTRADIOL
     Indication: HOT FLUSH
     Dosage: 0.075 MILLIGRAM, QD (AS PRESCRIBED)
     Route: 062
     Dates: start: 2020
  2. ESTRADIOL TRANSDERMAL SYSTEM [Suspect]
     Active Substance: ESTRADIOL
     Indication: ANXIETY

REACTIONS (5)
  - Anxiety [Recovering/Resolving]
  - Drug ineffective [Recovering/Resolving]
  - Hot flush [Recovering/Resolving]
  - Product adhesion issue [Recovering/Resolving]
  - Feeling abnormal [Recovering/Resolving]
